FAERS Safety Report 7419665-5 (Version None)
Quarter: 2011Q2

REPORT INFORMATION
  Report Type: 
  Country: None (occurrence: None)
  Receive Date: 20110418
  Receipt Date: 20110406
  Transmission Date: 20111010
  Serious: No
  Sender: FDA-Public Use
  Company Number: US-JNJFOC-20110403530

PATIENT
  Sex: Male
  Weight: 83.92 kg

DRUGS (3)
  1. SOMA [Concomitant]
     Indication: PAIN
     Route: 048
  2. DURAGESIC [Suspect]
     Indication: BACK PAIN
     Route: 062
  3. LORTAB [Concomitant]
     Indication: PAIN
     Route: 048

REACTIONS (1)
  - DRUG DOSE OMISSION [None]
